FAERS Safety Report 8941433 (Version 2)
Quarter: 2014Q2

REPORT INFORMATION
  Report Type: Spontaneous
  Country: GB (occurrence: GB)
  Receive Date: 20121203
  Receipt Date: 20140613
  Transmission Date: 20141212
  Serious: Yes (Disabling)
  Sender: FDA-Public Use
  Company Number: GB-TEVA-372189ISR

PATIENT
  Age: 75 Year
  Sex: Male
  Weight: 98.42 kg

DRUGS (6)
  1. TRIMETHOPRIM [Suspect]
     Indication: KIDNEY INFECTION
     Dates: start: 20121104, end: 20121111
  2. PENICILLIN [Concomitant]
  3. CLOPIDOGREL [Concomitant]
  4. OMEPRAZOLE [Concomitant]
  5. SYMBICORT [Concomitant]
  6. THYROID [Concomitant]

REACTIONS (10)
  - Dyspnoea [Not Recovered/Not Resolved]
  - Malaise [Not Recovered/Not Resolved]
  - Headache [Not Recovered/Not Resolved]
  - Decreased appetite [Not Recovered/Not Resolved]
  - Asthenia [Recovered/Resolved]
  - Vomiting [Not Recovered/Not Resolved]
  - Myalgia [Not Recovered/Not Resolved]
  - Nausea [Recovered/Resolved]
  - Tenderness [Recovered/Resolved]
  - Abdominal discomfort [Recovered/Resolved]
